FAERS Safety Report 25375207 (Version 1)
Quarter: 2025Q2

REPORT INFORMATION
  Report Type: Spontaneous
  Country: HR (occurrence: HR)
  Receive Date: 20250529
  Receipt Date: 20250529
  Transmission Date: 20250716
  Serious: Yes (Other)
  Sender: MYLAN
  Company Number: None

PATIENT
  Age: 60 Year
  Sex: Male

DRUGS (5)
  1. NORVASC [Suspect]
     Active Substance: AMLODIPINE BESYLATE
     Indication: Product used for unknown indication
     Dosage: 3 DOSAGE FORM, QD (3 X, 1 DF IS EQUAL TO 1 TABLET)
     Dates: start: 20250406, end: 20250406
  2. ZOLOFT [Suspect]
     Active Substance: SERTRALINE HYDROCHLORIDE
     Indication: Product used for unknown indication
     Dosage: 300 MILLIGRAM, QD (6X50 MG)
     Dates: start: 20250406, end: 20250406
  3. OLANZAPINE [Suspect]
     Active Substance: OLANZAPINE
     Indication: Product used for unknown indication
     Dosage: 35 MILLIGRAM, QD (7X5MG)
     Dates: start: 20250406, end: 20250406
  4. NORMABEL [Suspect]
     Active Substance: DIAZEPAM
     Indication: Product used for unknown indication
     Dosage: 75 MILLIGRAM, QD (15X5 MG)
     Dates: start: 20250406, end: 20250406
  5. TELMISARTAN [Suspect]
     Active Substance: TELMISARTAN
     Indication: Product used for unknown indication
     Dosage: 3 DOSAGE FORM, QD (3 X, 1 DF IS EQUAL TO 1 TABLET)
     Dates: start: 20250406, end: 20250406

REACTIONS (3)
  - Suicide attempt [Unknown]
  - Intentional overdose [Unknown]
  - Somnolence [Unknown]

NARRATIVE: CASE EVENT DATE: 20250406
